FAERS Safety Report 25224056 (Version 2)
Quarter: 2025Q2

REPORT INFORMATION
  Report Type: Spontaneous
  Country: US (occurrence: US)
  Receive Date: 20250422
  Receipt Date: 20250514
  Transmission Date: 20250717
  Serious: Yes (Other)
  Sender: AMGEN
  Company Number: US-AMGEN-USASP2025075776

PATIENT
  Age: 75 Year
  Sex: Female

DRUGS (9)
  1. ERENUMAB [Suspect]
     Active Substance: ERENUMAB
     Indication: Migraine
     Route: 065
  2. ESTROGENS [Concomitant]
     Active Substance: ESTROGENS
  3. MINOXIDIL [Concomitant]
     Active Substance: MINOXIDIL
  4. Triptan [Concomitant]
  5. GABAPENTIN [Concomitant]
     Active Substance: GABAPENTIN
  6. MAGNESIUM [Concomitant]
     Active Substance: MAGNESIUM
  7. UNSPECIFIED INGREDIENT [Concomitant]
     Active Substance: UNSPECIFIED INGREDIENT
  8. COENZYME Q10 [Concomitant]
     Active Substance: DIETARY SUPPLEMENT\UBIDECARENONE
  9. VITAMIN B2 [Concomitant]
     Active Substance: RIBOFLAVIN

REACTIONS (21)
  - COVID-19 [Unknown]
  - White matter lesion [Unknown]
  - Neuropathy peripheral [Unknown]
  - Migraine [Unknown]
  - Restless legs syndrome [Unknown]
  - Memory impairment [Unknown]
  - Raynaud^s phenomenon [Unknown]
  - Dry eye [Unknown]
  - Osteoporosis [Unknown]
  - Muscle spasms [Unknown]
  - Fall [Unknown]
  - Intention tremor [Unknown]
  - Dysphagia [Unknown]
  - Dysphonia [Unknown]
  - Viral infection [Unknown]
  - Vocal cord atrophy [Unknown]
  - Gait disturbance [Unknown]
  - Hypoacusis [Unknown]
  - Pain [Unknown]
  - Urinary incontinence [Unknown]
  - Arthritis [Unknown]

NARRATIVE: CASE EVENT DATE: 20240101
